FAERS Safety Report 7014560-8 (Version None)
Quarter: 2010Q3

REPORT INFORMATION
  Report Type: 
  Country: None (occurrence: None)
  Receive Date: 20100927
  Receipt Date: 20100914
  Transmission Date: 20110219
  Serious: Yes (Hospitalization)
  Sender: FDA-Public Use
  Company Number: CH-NOVOPROD-314988

PATIENT
  Age: 48 Year
  Sex: Male

DRUGS (5)
  1. NOVORAPID [Suspect]
     Indication: TYPE 1 DIABETES MELLITUS
     Dosage: UNK
  2. LANTUS [Suspect]
     Indication: TYPE 1 DIABETES MELLITUS
     Dosage: 26 IU, QD
     Route: 058
  3. LYRICA [Suspect]
     Indication: PAIN IN EXTREMITY
     Dosage: UNKNOWN PRIOR TO HOSPITALISATION
  4. LYRICA [Suspect]
     Dosage: 100 MG, BID
     Route: 048
     Dates: end: 20100801
  5. ASPIRIN [Concomitant]
     Dosage: 100 MG, QD
     Route: 048

REACTIONS (2)
  - BLOOD LACTIC ACID INCREASED [None]
  - PAIN IN EXTREMITY [None]
